FAERS Safety Report 6389450-4 (Version None)
Quarter: 2009Q4

REPORT INFORMATION
  Report Type: 
  Country: None (occurrence: None)
  Receive Date: 20091001
  Receipt Date: 20090924
  Transmission Date: 20100525
  Serious: Yes (Death)
  Sender: FDA-Public Use
  Company Number: SPV1-2009-01868

PATIENT
  Age: 17 Year
  Sex: Male

DRUGS (3)
  1. VYVANSE [Suspect]
     Indication: DRUG USE FOR UNKNOWN INDICATION
     Dosage: 50 MG, ORAL
     Route: 048
     Dates: start: 20071206, end: 20090918
  2. CLONIDINE [Concomitant]
  3. ZYPREXA [Concomitant]

REACTIONS (2)
  - CIRCULATORY COLLAPSE [None]
  - OFF LABEL USE [None]
